FAERS Safety Report 19798610 (Version 1)
Quarter: 2021Q3

REPORT INFORMATION
  Report Type: Spontaneous
  Country: FR (occurrence: FR)
  Receive Date: 20210907
  Receipt Date: 20210907
  Transmission Date: 20211014
  Serious: Yes (Other)
  Sender: FDA-Public Use
  Company Number: FR-TEVA-2021-FR-1949122

PATIENT
  Age: 16 Year
  Sex: Male

DRUGS (3)
  1. PREGABALINE [Suspect]
     Active Substance: PREGABALIN
     Dosage: UNKNOWNTHERAPY START DATE :ASKUTHERAPY END DATE :NOT ASKED
     Route: 065
  2. CLONAZEPAM. [Suspect]
     Active Substance: CLONAZEPAM
     Dosage: UNKNOWNTHERAPY START DATE :ASKU:THERAPY END DATE :NOT ASKED
     Route: 065
  3. CANNABIS [Suspect]
     Active Substance: CANNABIS SATIVA SUBSP. INDICA TOP
     Dosage: UNKNOWNTHERAPY START DATE :ASKUTHERAPY END DATE:NOT ASKED
     Route: 055

REACTIONS (3)
  - Aggression [Recovered/Resolved]
  - Agitation [Recovered/Resolved]
  - Drug abuse [Unknown]

NARRATIVE: CASE EVENT DATE: 202105
